FAERS Safety Report 7547561-1 (Version None)
Quarter: 2011Q2

REPORT INFORMATION
  Report Type: 
  Country: None (occurrence: None)
  Receive Date: 20110614
  Receipt Date: 20110530
  Transmission Date: 20111010
  Serious: Yes (Hospitalization)
  Sender: FDA-Public Use
  Company Number: RU-BAYER-201047737GPV

PATIENT
  Age: 72 Year
  Sex: Female
  Weight: 50 kg

DRUGS (16)
  1. CLOPIDOGREL [Suspect]
     Route: 048
     Dates: end: 20101022
  2. RAMIPRIL [Concomitant]
  3. BISOPROLOL FUMARATE [Concomitant]
  4. AMLODIPINE [Concomitant]
  5. ACETYLSALICYLIC ACID SRT [Suspect]
     Route: 048
     Dates: end: 20100917
  6. DIMEDROL [Concomitant]
  7. ACETYLSALICYLIC ACID SRT [Suspect]
     Route: 048
     Dates: end: 20100920
  8. CEFTRIAXONE [Concomitant]
  9. SPIRONOLACTONE [Concomitant]
  10. ACETYLSALICYLIC ACID SRT [Suspect]
     Route: 048
     Dates: end: 20100929
  11. OMEPRAZOLE [Concomitant]
  12. SULPIRIDE [Concomitant]
  13. ACETYLSALICYLIC ACID SRT [Suspect]
     Route: 048
     Dates: start: 20101023, end: 20101110
  14. TRIMETAZIDINE [Concomitant]
  15. SIMVASTATIN [Concomitant]
  16. RIVAROXABAN [Suspect]
     Indication: ACUTE CORONARY SYNDROME
     Dosage: DOSAGE FORM: TABLET
     Route: 048
     Dates: start: 20100924, end: 20101025

REACTIONS (3)
  - POSTINFARCTION ANGINA [None]
  - GASTRIC ULCER [None]
  - GASTROINTESTINAL HAEMORRHAGE [None]
